FAERS Safety Report 5782371-7 (Version None)
Quarter: 2008Q2

REPORT INFORMATION
  Report Type: 
  Country: None (occurrence: None)
  Receive Date: 20080623
  Receipt Date: 20080611
  Transmission Date: 20081010
  Serious: Yes (Life-Threatening, Hospitalization)
  Sender: FDA-Public Use
  Company Number: AT-PFIZER INC-2006096772

PATIENT
  Sex: Female
  Weight: 61 kg

DRUGS (3)
  1. SU-011,248 [Suspect]
     Indication: RENAL CELL CARCINOMA
     Route: 048
     Dates: start: 20060414, end: 20060802
  2. CANDESARTAN [Concomitant]
     Dosage: DAILY DOSE:8MG
     Route: 048
  3. METOPROLOL [Concomitant]
     Dosage: DAILY DOSE:47.5MG
     Route: 048

REACTIONS (3)
  - CEREBRAL HAEMORRHAGE [None]
  - CONVULSION [None]
  - THROMBOCYTOPENIA [None]
